FAERS Safety Report 5385099-0 (Version None)
Quarter: 2007Q3

REPORT INFORMATION
  Report Type: 
  Country: None (occurrence: None)
  Receive Date: 20070709
  Receipt Date: 20070627
  Transmission Date: 20080115
  Serious: Yes (Other)
  Sender: FDA-Public Use
  Company Number: 07H-087-0312805-00

PATIENT
  Age: 57 Year
  Sex: Male

DRUGS (8)
  1. PRECEDEX           (DEXMEDETOMIDINE HYDROCHLORIDE INJECTION) [Suspect]
     Indication: SEDATIVE THERAPY
     Dosage: NOT REPORTED, NOT REPORTED, INTRAVENOUS
     Route: 042
  2. CLOCAPRAMINE HYDROCHLORIDE [Suspect]
     Indication: SCHIZOPHRENIA
     Dosage: NOT REPORTED, NOT REPORTED, ORAL
     Route: 048
  3. LEVOMEPROMAZINE                (LEVOMEPROMAZINE) [Suspect]
     Indication: SCHIZOPHRENIA
     Dosage: NOT REPORTED, NOT REPORTED, ORAL
     Route: 048
  4. TRYCYCLIC ANTIDEPRESSANT [Concomitant]
  5. BENZODIAZEPINE                           (BENZODIAZEPINE DERIVATIVES) [Concomitant]
  6. EPHEDRINE HYDROCHLORIDE                      (EPHEDRINE HYDROCHLORIDE) [Concomitant]
  7. DOPAMINE HCL [Concomitant]
  8. PHENYLEPHRINE HYDROCHLORIDE [Concomitant]

REACTIONS (2)
  - DRUG INTERACTION [None]
  - HYPOTENSION [None]
